FAERS Safety Report 8232294-9 (Version None)
Quarter: 2012Q1

REPORT INFORMATION
  Report Type: 
  Country: None (occurrence: None)
  Receive Date: 20120323
  Receipt Date: 20120315
  Transmission Date: 20120608
  Serious: Yes (Hospitalization)
  Sender: FDA-Public Use
  Company Number: GB-CUBIST-2012S1000230

PATIENT
  Age: 76 Year
  Sex: Male
  Weight: 90 kg

DRUGS (2)
  1. RIFAMPICIN [Concomitant]
     Indication: PRODUCT USED FOR UNKNOWN INDICATION
     Dosage: DOSE UNIT:U
     Dates: start: 20120120, end: 20120217
  2. CUBICIN [Suspect]
     Indication: ARTHRITIS INFECTIVE
     Route: 042
     Dates: start: 20120120, end: 20120216

REACTIONS (2)
  - HAEMOLYTIC ANAEMIA [None]
  - EOSINOPHILIC PNEUMONIA [None]
